FAERS Safety Report 5615095-7 (Version None)
Quarter: 2008Q1

REPORT INFORMATION
  Report Type: 
  Country: None (occurrence: None)
  Receive Date: 20080206
  Receipt Date: 20070330
  Transmission Date: 20080703
  Serious: No
  Sender: FDA-Public Use
  Company Number: A0645401A

PATIENT
  Age: 30 Year
  Sex: Female

DRUGS (5)
  1. ARIXTRA [Suspect]
     Indication: THROMBOSIS PROPHYLAXIS
     Dosage: 2.5MG PER DAY
     Route: 058
     Dates: start: 20061101
  2. ASPIRIN [Concomitant]
  3. PRENATAL VITAMINS [Concomitant]
  4. FOLIC ACID [Concomitant]
  5. HORMONE [Concomitant]

REACTIONS (3)
  - DRUG EXPOSURE DURING PREGNANCY [None]
  - INJECTION SITE BRUISING [None]
  - INJECTION SITE SWELLING [None]
